FAERS Safety Report 7915397 (Version 4)
Quarter: 2014Q3

REPORT INFORMATION
  Report Type: Spontaneous
  Country: FR (occurrence: FR)
  Receive Date: 20110426
  Receipt Date: 20140826
  Transmission Date: 20150326
  Serious: Yes (Other)
  Sender: FDA-Public Use
  Company Number: FR-JNJFOC-20110406466

PATIENT
  Age: 48 Year
  Sex: Male

DRUGS (4)
  1. CYCLOSPORINE. [Suspect]
     Active Substance: CYCLOSPORINE
     Indication: COLITIS
  2. CORTICOSTEROIDS [Concomitant]
     Active Substance: CORTICOSTEROID NOS
     Indication: COLITIS
  3. INFLIXIMAB [Suspect]
     Active Substance: INFLIXIMAB
     Indication: COLITIS
     Route: 042
  4. IMMUNOSUPPRESANT DRUGS [Concomitant]
     Active Substance: UNSPECIFIED INGREDIENT
     Indication: COLITIS

REACTIONS (4)
  - Portal vein thrombosis [Unknown]
  - Liver abscess [Unknown]
  - Fusobacterium infection [Unknown]
  - Drug ineffective [Unknown]
